FAERS Safety Report 13131135 (Version 2)
Quarter: 2017Q1

REPORT INFORMATION
  Report Type: Spontaneous
  Country: PT (occurrence: PT)
  Receive Date: 20170119
  Receipt Date: 20170217
  Transmission Date: 20170428
  Serious: Yes (Other)
  Sender: FDA-Public Use
  Company Number: PT-FRESENIUS KABI-FK201700439

PATIENT
  Age: 78 Year
  Sex: Female
  Weight: 97 kg

DRUGS (3)
  1. PACLITAXEL 6MG/ML CONCENTRATE FOR SOLUTION FOR INFUSION [Suspect]
     Active Substance: PACLITAXEL
     Indication: BREAST NEOPLASM
     Route: 042
     Dates: start: 20161213
  2. ONDANSETROM LABESFAL [Concomitant]
     Indication: PROPHYLAXIS
     Route: 042
     Dates: start: 20161213
  3. BLOCULCER [Concomitant]
     Indication: PROPHYLAXIS
     Route: 042
     Dates: start: 20161213

REACTIONS (4)
  - Epigastric discomfort [Recovered/Resolved]
  - Feeling hot [Recovered/Resolved]
  - Back pain [Recovered/Resolved]
  - Erythema [Recovered/Resolved]

NARRATIVE: CASE EVENT DATE: 20161213
